FAERS Safety Report 11078137 (Version 2)
Quarter: 2015Q2

REPORT INFORMATION
  Report Type: Spontaneous
  Country: ES (occurrence: ES)
  Receive Date: 20150430
  Receipt Date: 20150609
  Transmission Date: 20150821
  Serious: No
  Sender: FDA-Public Use
  Company Number: ES-JNJFOC-20150420193

PATIENT
  Sex: Male

DRUGS (1)
  1. DUROGESIC [Suspect]
     Active Substance: FENTANYL
     Indication: PAIN
     Route: 062

REACTIONS (6)
  - Intercepted medication error [Recovered/Resolved]
  - Fatigue [Not Recovered/Not Resolved]
  - Intentional product misuse [Recovered/Resolved]
  - Agitation [Recovered/Resolved]
  - Wrong technique in drug usage process [Recovered/Resolved]
  - Aerophagia [Recovered/Resolved]
